FAERS Safety Report 25681745 (Version 1)
Quarter: 2025Q3

REPORT INFORMATION
  Report Type: Report from Study
  Country: TR (occurrence: TR)
  Receive Date: 20250814
  Receipt Date: 20250814
  Transmission Date: 20251020
  Serious: Yes (Death)
  Sender: PFIZER
  Company Number: TR-PFIZER INC-PV202500095717

PATIENT

DRUGS (1)
  1. BRENTUXIMAB VEDOTIN [Suspect]
     Active Substance: BRENTUXIMAB VEDOTIN
     Indication: Hodgkin^s disease refractory
     Dosage: 1.8 MG/KG, EVERY 3 WEEKS, FOR 30 MIN

REACTIONS (1)
  - Neutropenia [Fatal]
